FAERS Safety Report 9458659 (Version 1)
Quarter: 2013Q3

REPORT INFORMATION
  Report Type: Spontaneous
  Country: US (occurrence: US)
  Receive Date: 20130814
  Receipt Date: 20130814
  Transmission Date: 20140515
  Serious: Yes (Other)
  Sender: FDA-Public Use
  Company Number: US-TEVA-426062USA

PATIENT
  Sex: Female

DRUGS (1)
  1. PARAGARD 380A [Suspect]
     Route: 015

REACTIONS (6)
  - Urinary tract infection [Unknown]
  - Medical device complication [Unknown]
  - Embedded device [Unknown]
  - Pollakiuria [Unknown]
  - Device expulsion [Unknown]
  - Discomfort [Unknown]
